FAERS Safety Report 7623346 (Version 4)
Quarter: 2013Q3

REPORT INFORMATION
  Report Type: Spontaneous
  Country: US (occurrence: US)
  Receive Date: 20101011
  Receipt Date: 20130904
  Transmission Date: 20140515
  Serious: Yes (Other)
  Sender: FDA-Public Use
  Company Number: US-JNJFOC-20100604204

PATIENT
  Age: 64 Year
  Sex: Female

DRUGS (5)
  1. LEVAQUIN [Suspect]
     Indication: RESPIRATORY DISORDER
     Route: 048
  2. PREDNISONE [Suspect]
     Indication: COUGH
     Route: 065
  3. STEROID INJECTION NOS [Suspect]
     Indication: PRODUCTIVE COUGH
     Route: 008
  4. STEROID INJECTION NOS [Suspect]
     Indication: ASTHMA
     Route: 008
  5. STEROID INJECTION NOS [Suspect]
     Indication: INTERVERTEBRAL DISC DISORDER
     Route: 008

REACTIONS (8)
  - Rotator cuff syndrome [Unknown]
  - Joint injury [Unknown]
  - Carpal tunnel syndrome [Unknown]
  - Tendonitis [Unknown]
  - Rotator cuff syndrome [Unknown]
  - Musculoskeletal pain [Unknown]
  - Pain in extremity [Unknown]
  - Tendon disorder [Unknown]
